FAERS Safety Report 5397237-4 (Version None)
Quarter: 2007Q3

REPORT INFORMATION
  Report Type: 
  Country: None (occurrence: None)
  Receive Date: 20070725
  Receipt Date: 20070713
  Transmission Date: 20080115
  Serious: Yes (Other)
  Sender: FDA-Public Use
  Company Number: BR-PFIZER INC-2007058592

PATIENT
  Sex: Male
  Weight: 120 kg

DRUGS (1)
  1. CELEBRA [Suspect]
     Indication: BACK PAIN

REACTIONS (1)
  - INTERVERTEBRAL DISC OPERATION [None]
